FAERS Safety Report 9442683 (Version 1)
Quarter: 2013Q3

REPORT INFORMATION
  Report Type: Spontaneous
  Country: US (occurrence: US)
  Receive Date: 20130806
  Receipt Date: 20130806
  Transmission Date: 20140515
  Serious: Yes (Life-Threatening)
  Sender: FDA-Public Use
  Company Number: US-ROXANE LABORATORIES, INC.-2013-RO-01306RO

PATIENT
  Age: 74 Year
  Sex: Male
  Weight: 78 kg

DRUGS (6)
  1. CYCLOPHOSPHAMIDE TABLETS USP [Suspect]
     Indication: PROSTATE CANCER
     Dosage: 50 MG
     Route: 048
     Dates: start: 20130423, end: 20130613
  2. REVLIMID [Suspect]
     Indication: PROSTATE CANCER
     Dosage: 25 MG
     Route: 048
     Dates: start: 20130423, end: 20130610
  3. ACETYLSALICYCLIC ACID [Concomitant]
  4. OSCAL [Concomitant]
  5. SOMINEX [Concomitant]
  6. HYDROCORTISONE [Concomitant]
     Dosage: 2.5 MG

REACTIONS (2)
  - White blood cell count decreased [Unknown]
  - Neutrophil count decreased [Unknown]
